FAERS Safety Report 16212928 (Version 1)
Quarter: 2019Q2

REPORT INFORMATION
  Report Type: Report from Study
  Country: DE (occurrence: DE)
  Receive Date: 20190418
  Receipt Date: 20190418
  Transmission Date: 20190711
  Serious: Yes (Hospitalization, Other)
  Sender: FDA-Public Use
  Company Number: DE-ELI_LILLY_AND_COMPANY-DE201904007179

PATIENT
  Age: 69 Year
  Sex: Male

DRUGS (1)
  1. TERIPARATIDE [Suspect]
     Active Substance: TERIPARATIDE
     Indication: OSTEOPOROSIS
     Dosage: UNK, UNKNOWN
     Route: 058
     Dates: start: 20181019

REACTIONS (7)
  - Bronchial carcinoma [Not Recovered/Not Resolved]
  - Abdominal pain lower [Recovered/Resolved]
  - Oedema peripheral [Unknown]
  - Lung disorder [Unknown]
  - Heart rate increased [Unknown]
  - Nosocomial infection [Recovered/Resolved]
  - Heart valve incompetence [Unknown]

NARRATIVE: CASE EVENT DATE: 20190403
